FAERS Safety Report 9788875 (Version 1)
Quarter: 2013Q4

REPORT INFORMATION
  Report Type: Spontaneous
  Country: FR (occurrence: FR)
  Receive Date: 20131230
  Receipt Date: 20131230
  Transmission Date: 20140711
  Serious: Yes (Hospitalization)
  Sender: FDA-Public Use
  Company Number: FR-GLAXOSMITHKLINE-B0954407A

PATIENT
  Age: 30 Year
  Sex: Female

DRUGS (4)
  1. LAMICTAL [Suspect]
     Indication: EPILEPSY
     Route: 048
     Dates: start: 2013
  2. KEPPRA [Suspect]
     Indication: EPILEPSY
     Dosage: 3G PER DAY
     Route: 048
     Dates: start: 2013
  3. FOLIC ACID [Concomitant]
     Indication: PREGNANCY
     Dosage: 5MG PER DAY
     Route: 065
     Dates: start: 2013
  4. URBANYL [Concomitant]
     Indication: EPILEPSY
     Dosage: 5MG PER DAY
     Route: 065
     Dates: start: 20131016

REACTIONS (4)
  - Convulsion [Recovered/Resolved]
  - Drug clearance increased [Not Recovered/Not Resolved]
  - Underdose [Not Recovered/Not Resolved]
  - Exposure during pregnancy [Unknown]
